FAERS Safety Report 13922521 (Version 2)
Quarter: 2017Q3

REPORT INFORMATION
  Report Type: Report from Study
  Country: MX (occurrence: MX)
  Receive Date: 20170830
  Receipt Date: 20170907
  Transmission Date: 20171127
  Serious: Yes (Other)
  Sender: FDA-Public Use
  Company Number: PHHY2017MX120241

PATIENT
  Sex: Male

DRUGS (4)
  1. ENTRESTO [Suspect]
     Active Substance: SACUBITRIL\VALSARTAN
     Indication: HYPERTENSIVE CARDIOMYOPATHY
     Dosage: 1 DF (50 MG), QD
     Route: 048
  2. ROFUCAL [Concomitant]
     Indication: POLYURIA
     Dosage: 25 MG
     Route: 048
  3. XARELTO [Concomitant]
     Active Substance: RIVAROXABAN
     Indication: PRODUCT USED FOR UNKNOWN INDICATION
     Dosage: 20 MG, UNK
     Route: 048
  4. SEEBRI BREEZHALER [Suspect]
     Active Substance: GLYCOPYRROLATE
     Indication: PULMONARY OEDEMA
     Dosage: 1 DF (50 UG), QD
     Route: 055

REACTIONS (5)
  - Memory impairment [Not Recovered/Not Resolved]
  - Mitral valve incompetence [Unknown]
  - Dry mouth [Not Recovered/Not Resolved]
  - Product use in unapproved indication [Not Recovered/Not Resolved]
  - Sleep apnoea syndrome [Not Recovered/Not Resolved]
